FAERS Safety Report 5636803-5 (Version None)
Quarter: 2008Q1

REPORT INFORMATION
  Report Type: 
  Country: None (occurrence: None)
  Receive Date: 20080219
  Receipt Date: 20080219
  Transmission Date: 20080703
  Serious: Yes (Hospitalization)
  Sender: FDA-Public Use
  Company Number: None

PATIENT
  Age: 60 Year
  Sex: Male

DRUGS (1)
  1. CYCLOPHOSPHAMIDE [Suspect]
     Dosage: 1500MG ONCE IV
     Route: 042
     Dates: start: 20070717, end: 20070717

REACTIONS (2)
  - HAEMATURIA [None]
  - URINARY TRACT INFECTION [None]
